FAERS Safety Report 7827646-2 (Version None)
Quarter: 2011Q4

REPORT INFORMATION
  Report Type: 
  Country: None (occurrence: None)
  Receive Date: 20111020
  Receipt Date: 20111011
  Transmission Date: 20120403
  Serious: Yes (Death)
  Sender: FDA-Public Use
  Company Number: PHHY2011DE90587

PATIENT
  Age: 48 Year
  Sex: Male

DRUGS (1)
  1. CYCLOSPORINE [Suspect]
     Indication: STEM CELL TRANSPLANT
     Dosage: 300 MG,DAILY

REACTIONS (6)
  - ASPERGILLOSIS [None]
  - VISION BLURRED [None]
  - VITREOUS DISORDER [None]
  - PNEUMONIA [None]
  - EYE INFECTION FUNGAL [None]
  - VISUAL ACUITY REDUCED [None]
